FAERS Safety Report 14857684 (Version 1)
Quarter: 2018Q2

REPORT INFORMATION
  Report Type: Spontaneous
  Country: US (occurrence: US)
  Receive Date: 20180508
  Receipt Date: 20180508
  Transmission Date: 20180711
  Serious: No
  Sender: FDA-Public Use
  Company Number: US-RADIUS HEALTH INC.-2018US000401

PATIENT
  Age: 72 Year
  Sex: Female
  Weight: 43.9 kg

DRUGS (1)
  1. TYMLOS [Suspect]
     Active Substance: ABALOPARATIDE
     Indication: OSTEOPOROSIS POSTMENOPAUSAL
     Dosage: 80 MCG, ONCE A DAY
     Route: 058
     Dates: start: 20180307

REACTIONS (13)
  - Pain [Recovering/Resolving]
  - Heart rate increased [Recovering/Resolving]
  - Dizziness [Unknown]
  - Muscular weakness [Recovering/Resolving]
  - Needle issue [Unknown]
  - Muscle spasms [Recovering/Resolving]
  - Nausea [Unknown]
  - Alopecia [Unknown]
  - Heart rate irregular [Unknown]
  - Headache [Unknown]
  - Back pain [Recovering/Resolving]
  - Arthralgia [Unknown]
  - Pain in extremity [Recovering/Resolving]

NARRATIVE: CASE EVENT DATE: 20180307
